FAERS Safety Report 8784205 (Version 1)
Quarter: 2012Q4

REPORT INFORMATION
  Report Type: 
  Country: US (occurrence: US)
  Receive Date: 20120913
  Receipt Date: 20120913
  Transmission Date: 20130627
  Serious: Yes (Hospitalization)
  Sender: FDA-Public Use
  Company Number: US-CELGENEUS-163-21880-12090848

PATIENT
  Sex: Male

DRUGS (1)
  1. REVLIMID [Suspect]
     Indication: AMYLOIDOSIS
     Dosage: 25 Milligram
     Route: 048
     Dates: start: 201203

REACTIONS (4)
  - Pulmonary haemorrhage [Unknown]
  - Haematochezia [Unknown]
  - Lobar pneumonia [Unknown]
  - Oedema peripheral [Unknown]
